FAERS Safety Report 20257253 (Version 1)
Quarter: 2021Q4

REPORT INFORMATION
  Report Type: Report from Study
  Country: ES (occurrence: ES)
  Receive Date: 20211230
  Receipt Date: 20211230
  Transmission Date: 20220303
  Serious: Yes (Other)
  Sender: FDA-Public Use
  Company Number: ES-Clinigen Group PLC/ Clinigen Healthcare Ltd-ES-CLGN-21-00677

PATIENT
  Sex: Male

DRUGS (6)
  1. FOSCAVIR [Suspect]
     Active Substance: FOSCARNET SODIUM
     Indication: Cytomegalovirus infection
     Route: 042
     Dates: start: 20211028, end: 20211110
  2. VALGANCICLOVIR [Concomitant]
     Active Substance: VALGANCICLOVIR
     Indication: Cytomegalovirus infection
     Route: 048
     Dates: start: 20210720, end: 20210810
  3. VALGANCICLOVIR [Concomitant]
     Active Substance: VALGANCICLOVIR
     Route: 048
     Dates: start: 20210910, end: 20210926
  4. VALGANCICLOVIR [Concomitant]
     Active Substance: VALGANCICLOVIR
     Route: 048
     Dates: start: 20210927, end: 20211027
  5. GANCICLOVIR [Concomitant]
     Active Substance: GANCICLOVIR
     Indication: Cytomegalovirus infection
     Route: 042
     Dates: start: 20210811, end: 20210823
  6. GANCICLOVIR [Concomitant]
     Active Substance: GANCICLOVIR
     Route: 042
     Dates: start: 20210824, end: 20210909

REACTIONS (3)
  - Hepatotoxicity [Unknown]
  - Nephropathy toxic [Unknown]
  - Drug effective for unapproved indication [Unknown]
